FAERS Safety Report 15142001 (Version 2)
Quarter: 2018Q3

REPORT INFORMATION
  Report Type: Spontaneous
  Country: IT (occurrence: IT)
  Receive Date: 20180713
  Receipt Date: 20180806
  Transmission Date: 20181010
  Serious: Yes (Hospitalization)
  Sender: FDA-Public Use
  Company Number: IT-SAKK-2018SA176793AA

PATIENT
  Age: 64 Year
  Sex: Female

DRUGS (5)
  1. ZANEDIP [Concomitant]
     Active Substance: LERCANIDIPINE HYDROCHLORIDE
     Dosage: 20 MG, QCY
     Route: 048
  2. LASIX [Concomitant]
     Active Substance: FUROSEMIDE
     Dosage: 25 MG, QCY
     Route: 048
  3. ENALAPRIL [Concomitant]
     Active Substance: ENALAPRIL
     Dosage: 20 MG, QCY
     Route: 048
  4. NEBIVOLOL. [Concomitant]
     Active Substance: NEBIVOLOL
     Dosage: UNK, UNK
     Route: 065
  5. SOLOSA [Suspect]
     Active Substance: GLIMEPIRIDE
     Indication: INTENTIONAL PRODUCT MISUSE
     Dosage: 2 MG, QCY
     Route: 048

REACTIONS (5)
  - Hypoglycaemic coma [Recovering/Resolving]
  - Hypoglycaemia [Recovering/Resolving]
  - Drug abuse [Unknown]
  - Sopor [Recovering/Resolving]
  - Intentional product misuse [Unknown]

NARRATIVE: CASE EVENT DATE: 20180618
